FAERS Safety Report 6756205-8 (Version None)
Quarter: 2010Q2

REPORT INFORMATION
  Report Type: 
  Country: None (occurrence: None)
  Receive Date: 20100604
  Receipt Date: 20100602
  Transmission Date: 20101027
  Serious: Yes (Hospitalization)
  Sender: FDA-Public Use
  Company Number: PHHO2010US08407

PATIENT
  Sex: Female
  Weight: 61.5 kg

DRUGS (3)
  1. AFINITOR [Suspect]
     Indication: METASTATIC NEOPLASM
     Dosage: UNK
     Route: 048
     Dates: start: 20100304
  2. CARBOPLATIN [Suspect]
     Indication: METASTATIC NEOPLASM
     Dosage: UNK
     Route: 042
     Dates: start: 20100304
  3. PACLITAXEL [Suspect]
     Indication: METASTATIC NEOPLASM
     Dosage: 200 MG/M2
     Route: 042
     Dates: start: 20100304, end: 20100519

REACTIONS (6)
  - ABDOMINAL DISCOMFORT [None]
  - ABDOMINAL DISTENSION [None]
  - APHAGIA [None]
  - HYPONATRAEMIA [None]
  - MOVEMENT DISORDER [None]
  - PLATELET DISORDER [None]
